FAERS Safety Report 9079449 (Version 2)
Quarter: 2013Q1

REPORT INFORMATION
  Report Type: Report from Study
  Country: US (occurrence: US)
  Receive Date: 20130130
  Receipt Date: 20130319
  Transmission Date: 20140127
  Serious: Yes (Life-Threatening, Hospitalization)
  Sender: FDA-Public Use
  Company Number: US-SHIRE-ALL1-2012-04522

PATIENT
  Sex: 0

DRUGS (7)
  1. 489 (LISDEXAMFETAMINE DIMESYLATE) [Suspect]
     Indication: MAJOR DEPRESSION
     Dosage: 70 MG, 1X/DAY:QD
     Route: 048
     Dates: start: 20120907
  2. 489 (LISDEXAMFETAMINE DIMESYLATE) [Suspect]
     Dosage: 30 MG, 1X/DAY:QD
     Route: 048
     Dates: start: 20120816, end: 2012
  3. 489 (LISDEXAMFETAMINE DIMESYLATE) [Suspect]
     Dosage: 50 MG, 1X/DAY:QD
     Route: 048
     Dates: start: 20120831, end: 2012
  4. DULOXETINE HYDROCHLORIDE [Suspect]
     Indication: MAJOR DEPRESSION
     Dosage: UNK UNK, UNKNOWN
     Route: 048
     Dates: start: 20120417
  5. IBUPROFEN [Concomitant]
     Indication: MYALGIA
     Dosage: UNK UNK, UNKNOWN
     Route: 065
     Dates: start: 1995
  6. IBUPROFEN [Concomitant]
     Indication: DEEP VEIN THROMBOSIS
     Dosage: UNK UNK, UNKNOWN
     Route: 065
     Dates: start: 20120915
  7. RANITIDINE [Concomitant]
     Indication: DYSPEPSIA
     Dosage: UNK UNK, UNKNOWN
     Route: 065
     Dates: start: 20120915

REACTIONS (1)
  - Deep vein thrombosis [Recovered/Resolved]
